FAERS Safety Report 21364144 (Version 1)
Quarter: 2022Q3

REPORT INFORMATION
  Report Type: Report from Study
  Country: US (occurrence: US)
  Receive Date: 20220922
  Receipt Date: 20220922
  Transmission Date: 20221026
  Serious: Yes (Other)
  Sender: FDA-Public Use
  Company Number: US-ABBVIE-4127409

PATIENT
  Sex: Male

DRUGS (3)
  1. IMBRUVICA [Suspect]
     Active Substance: IBRUTINIB
     Indication: Chronic lymphocytic leukaemia
     Route: 048
  2. MODERNA COVID-19 VACCINE [Concomitant]
     Active Substance: ELASOMERAN
     Indication: COVID-19 immunisation
     Dosage: FREQUENCY: ONE IN ONE IN ONCE?1ST DOSE
     Route: 030
     Dates: start: 20210902, end: 20210902
  3. MODERNA COVID-19 VACCINE [Concomitant]
     Active Substance: ELASOMERAN
     Indication: COVID-19 immunisation
     Dosage: FREQUENCY: ONE IN ONE IN ONCE?2ND DOSE
     Route: 030
     Dates: start: 20211210, end: 20211210

REACTIONS (4)
  - Neoplasm malignant [Unknown]
  - Hypertension [Unknown]
  - Diabetes mellitus [Unknown]
  - Gout [Unknown]
